FAERS Safety Report 9321838 (Version 1)
Quarter: 2013Q2

REPORT INFORMATION
  Report Type: Spontaneous
  Country: US (occurrence: US)
  Receive Date: 20130531
  Receipt Date: 20130531
  Transmission Date: 20140414
  Serious: No
  Sender: FDA-Public Use
  Company Number: US-ABBOTT-12P-163-0959013-00

PATIENT
  Age: 46 Year
  Sex: Male
  Weight: 108.96 kg

DRUGS (1)
  1. MARINOL [Suspect]
     Indication: NAUSEA
     Dates: start: 201108

REACTIONS (1)
  - Drug screen positive [Unknown]
